FAERS Safety Report 7322218-0 (Version None)
Quarter: 2011Q1

REPORT INFORMATION
  Report Type: 
  Country: None (occurrence: None)
  Receive Date: 20110301
  Receipt Date: 20110222
  Transmission Date: 20110831
  Serious: Yes (Other)
  Sender: FDA-Public Use
  Company Number: US-BIOGENIDEC-2010BI023181

PATIENT
  Age: 36 Year
  Sex: Female

DRUGS (10)
  1. ZYRTEC [Concomitant]
  2. OXYCONTIN [Concomitant]
  3. NEURONTIN [Concomitant]
  4. TYSABRI [Suspect]
     Indication: MULTIPLE SCLEROSIS
     Route: 042
     Dates: start: 20081219, end: 20100614
  5. PRENATAL VITAMINS [Concomitant]
     Dates: start: 20100701
  6. METHADONE [Concomitant]
  7. PROVIGIL [Concomitant]
  8. CENTRUM [Concomitant]
  9. BACLOFEN [Concomitant]
  10. NITROFURANTOIN [Concomitant]

REACTIONS (2)
  - CAESAREAN SECTION [None]
  - PREGNANCY [None]
